FAERS Safety Report 8911861 (Version 2)
Quarter: 2012Q4

REPORT INFORMATION
  Report Type: 
  Country: US (occurrence: US)
  Receive Date: 20121116
  Receipt Date: 20121121
  Transmission Date: 20130627
  Serious: Yes (Other)
  Sender: FDA-Public Use
  Company Number: US-TEVA-370386USA

PATIENT
  Age: 31 Year
  Sex: Female
  Weight: 124.85 kg

DRUGS (2)
  1. PLAN B ONE-STEP [Suspect]
     Indication: POST COITAL CONTRACEPTION
     Dosage: 1.5 Milligram Daily;
     Route: 048
     Dates: start: 201210, end: 201210
  2. PLAN B ONE-STEP [Suspect]
     Dosage: 1.5 Milligram Daily;
     Route: 048
     Dates: start: 20121021, end: 20121021

REACTIONS (4)
  - Blood glucose increased [Unknown]
  - Headache [Not Recovered/Not Resolved]
  - Drug ineffective [Unknown]
  - Pregnancy after post coital contraception [Unknown]
